FAERS Safety Report 8186561-8 (Version None)
Quarter: 2012Q1

REPORT INFORMATION
  Report Type: 
  Country: None (occurrence: None)
  Receive Date: 20120305
  Receipt Date: 20120305
  Transmission Date: 20120608
  Serious: Yes (Hospitalization)
  Sender: FDA-Public Use
  Company Number: None

PATIENT
  Sex: Male
  Weight: 66.36 kg

DRUGS (3)
  1. BEVACIZUMAB (RHUMAB VEGF) [Suspect]
     Dosage: 1410 MG
     Dates: end: 20120131
  2. ELOXATIN [Suspect]
     Dosage: 181 MG
     Dates: end: 20120117
  3. FLUOROURACIL [Suspect]
     Dosage: 16284 MG
     Dates: end: 20120131

REACTIONS (13)
  - ABDOMINAL PAIN UPPER [None]
  - URINARY TRACT INFECTION [None]
  - ASTHENIA [None]
  - OESOPHAGEAL STENOSIS [None]
  - DEHYDRATION [None]
  - OESOPHAGITIS [None]
  - DEVICE RELATED INFECTION [None]
  - ESCHERICHIA TEST POSITIVE [None]
  - WEIGHT DECREASED [None]
  - NAUSEA [None]
  - VOMITING [None]
  - DECREASED APPETITE [None]
  - ACINETOBACTER TEST POSITIVE [None]
